FAERS Safety Report 11636212 (Version 1)
Quarter: 2015Q4

REPORT INFORMATION
  Report Type: Spontaneous
  Country: US (occurrence: None)
  Receive Date: 20151015
  Receipt Date: 20151015
  Transmission Date: 20160304
  Serious: Yes (Hospitalization, Other)
  Sender: FDA-Public Use
  Company Number: None

PATIENT
  Age: 47 Year
  Sex: Male
  Weight: 70.31 kg

DRUGS (4)
  1. ZYPREXA [Suspect]
     Active Substance: OLANZAPINE
     Indication: HALLUCINATION
     Dosage: 1 PILL BEFORE BED
     Route: 048
  2. GLUCOSAMINE/CHONDROITIN JOINT SUPPLEMENT [Concomitant]
  3. NATURE^S PLUS ADULT^S MULTI-VITAMIN, PINEAPPLE, CHEWABLE TABLETS [Concomitant]
  4. BEANO (GENERIC) [Concomitant]

REACTIONS (1)
  - Insomnia [None]

NARRATIVE: CASE EVENT DATE: 20140905
